FAERS Safety Report 19434098 (Version 5)
Quarter: 2021Q4

REPORT INFORMATION
  Report Type: Report from Study
  Country: US (occurrence: US)
  Receive Date: 20210618
  Receipt Date: 20211207
  Transmission Date: 20220303
  Serious: Yes (Other)
  Sender: FDA-Public Use
  Company Number: US-NOVARTISPH-NVSC2021US126112

PATIENT
  Age: 74 Year
  Sex: Male

DRUGS (2)
  1. ENTRESTO [Suspect]
     Active Substance: SACUBITRIL\VALSARTAN
     Indication: Product used for unknown indication
     Dosage: 1 DF, BID (24/26 MG)
     Route: 048
     Dates: start: 202104
  2. ENTRESTO [Suspect]
     Active Substance: SACUBITRIL\VALSARTAN
     Dosage: 1 DF, BID(49/51 MG)
     Route: 048

REACTIONS (9)
  - Loss of consciousness [Unknown]
  - Spinal fracture [Unknown]
  - Vomiting [Unknown]
  - Weight increased [Unknown]
  - Fluid retention [Unknown]
  - Oxygen saturation decreased [Unknown]
  - Weight fluctuation [Unknown]
  - Nausea [Unknown]
  - Dizziness [Unknown]

NARRATIVE: CASE EVENT DATE: 20210901
